FAERS Safety Report 9807824 (Version 1)
Quarter: 2014Q1

REPORT INFORMATION
  Report Type: Spontaneous
  Country: AU (occurrence: AU)
  Receive Date: 20140110
  Receipt Date: 20140110
  Transmission Date: 20141002
  Serious: Yes (Hospitalization, Other)
  Sender: FDA-Public Use
  Company Number: AU-ROCHE-1330617

PATIENT
  Sex: Female

DRUGS (4)
  1. RITUXIMAB [Suspect]
     Indication: IDIOPATHIC ANGIOEDEMA
     Route: 065
     Dates: start: 201211
  2. RITUXIMAB [Suspect]
     Indication: IDIOPATHIC URTICARIA
  3. MYCOPHENOLATE MOFETIL [Suspect]
     Indication: PRODUCT USED FOR UNKNOWN INDICATION
     Route: 065
  4. PREDNISOLONE [Concomitant]

REACTIONS (2)
  - Idiopathic angioedema [Unknown]
  - Idiopathic urticaria [Unknown]
